FAERS Safety Report 16958812 (Version 1)
Quarter: 2019Q4

REPORT INFORMATION
  Report Type: Spontaneous
  Country: US (occurrence: US)
  Receive Date: 20191024
  Receipt Date: 20191024
  Transmission Date: 20200122
  Serious: No
  Sender: FDA-Public Use
  Company Number: US-BEH-2019108518

PATIENT
  Sex: Female

DRUGS (14)
  1. HIZENTRA [Suspect]
     Active Substance: HUMAN IMMUNOGLOBULIN G
     Indication: TYPE V HYPERLIPIDAEMIA
     Dosage: 24 GRAM, QOW
     Route: 058
     Dates: start: 201812
  2. CEREFOLIN NAC [ACETYLCYSTEINE;CALCIUM LEVOMEFOLATE;MECOBALAMIN] [Concomitant]
  3. FISH OIL [Concomitant]
     Active Substance: FISH OIL
     Dosage: 1200 MILLIGRAM
  4. GENTAMICIN SULFATE. [Concomitant]
     Active Substance: GENTAMICIN SULFATE
  5. DEXILANT [Concomitant]
     Active Substance: DEXLANSOPRAZOLE
     Dosage: 60 MILLIGRAM
  6. LIDOCAINE. [Concomitant]
     Active Substance: LIDOCAINE
     Indication: PREMEDICATION
  7. XOPENEX [Concomitant]
     Active Substance: LEVALBUTEROL HYDROCHLORIDE
     Dosage: 1.25 MILLIGRAM / 3 ML
  8. CLOPIDOGREL [Concomitant]
     Active Substance: CLOPIDOGREL BISULFATE
     Dosage: 75 MILLIGRAM
  9. HYDROCHLOROTH [Concomitant]
     Active Substance: HYDROCHLOROTHIAZIDE
  10. CETIRIZINE HCL [Concomitant]
     Active Substance: CETIRIZINE HYDROCHLORIDE
     Dosage: 10 MILLIGRAM
  11. AZITHROMYCIN ANHYDROUS. [Concomitant]
     Active Substance: AZITHROMYCIN ANHYDROUS
     Dosage: 600 MILLIGRAM
  12. ADVAIR HFA [Concomitant]
     Active Substance: FLUTICASONE PROPIONATE\SALMETEROL XINAFOATE
  13. AUGMENTIN [Concomitant]
     Active Substance: AMOXICILLIN\CLAVULANATE POTASSIUM
  14. ASPIRIN. [Concomitant]
     Active Substance: ASPIRIN
     Dosage: 81 MILLIGRAM

REACTIONS (6)
  - Ill-defined disorder [Recovered/Resolved]
  - Swelling [Recovered/Resolved]
  - Fatigue [Recovered/Resolved]
  - No adverse event [Unknown]
  - Product use in unapproved indication [Unknown]
  - Rash erythematous [Recovered/Resolved]
